FAERS Safety Report 9283613 (Version 1)
Quarter: 2013Q2

REPORT INFORMATION
  Report Type: Spontaneous
  Country: IN (occurrence: None)
  Receive Date: 20130508
  Receipt Date: 20130508
  Transmission Date: 20140414
  Serious: Yes (Death)
  Sender: FDA-Public Use
  Company Number: 2013P1005195

PATIENT
  Sex: 0

DRUGS (1)
  1. VANCOMYCIN [Suspect]

REACTIONS (2)
  - Hypokalaemia [None]
  - Cardiac arrest [None]
